FAERS Safety Report 8590641-2 (Version None)
Quarter: 2012Q3

REPORT INFORMATION
  Report Type: 
  Country: None (occurrence: None)
  Receive Date: 20120813
  Receipt Date: 20120808
  Transmission Date: 20120928
  Serious: No
  Sender: FDA-Public Use
  Company Number: US-PFIZER INC-2012193682

PATIENT
  Age: 65 Year
  Sex: Male
  Weight: 117.91 kg

DRUGS (6)
  1. LIPITOR [Suspect]
     Indication: BLOOD CHOLESTEROL INCREASED
     Dosage: 10 MG, ONCE A DAY
     Route: 048
     Dates: start: 20120101, end: 20120101
  2. TAMSULOSIN [Concomitant]
     Dosage: 0.4 MG, UNK
  3. NEXIUM [Concomitant]
     Dosage: 20 MG, UNK
  4. LEXAPRO [Concomitant]
     Dosage: UNK
  5. TRIAMTERENE AND HYDROCHLOROTHIAZIDE [Concomitant]
     Dosage: 37.5/25 MG, UNK
  6. AMLODIPINE [Concomitant]
     Dosage: 10 MG, UNK

REACTIONS (1)
  - MYALGIA [None]
